FAERS Safety Report 6697728-X (Version None)
Quarter: 2010Q2

REPORT INFORMATION
  Report Type: 
  Country: None (occurrence: None)
  Receive Date: 20100423
  Receipt Date: 20100413
  Transmission Date: 20101027
  Serious: Yes (Hospitalization)
  Sender: FDA-Public Use
  Company Number: B0641393A

PATIENT
  Age: 76 Year
  Sex: Male

DRUGS (2)
  1. PAROXETINE HCL [Suspect]
     Indication: DEPRESSION
  2. MILNACIPRAN (FORMULATION UNKNOWN) (MILNACIPRAN) [Suspect]
     Indication: FIBROMYALGIA
     Dosage: 50 MG TWICE PER DAY

REACTIONS (8)
  - AUTONOMIC NERVOUS SYSTEM IMBALANCE [None]
  - FIBROMYALGIA [None]
  - GASTROINTESTINAL SOUNDS ABNORMAL [None]
  - MENTAL STATUS CHANGES [None]
  - PYREXIA [None]
  - SEROTONIN SYNDROME [None]
  - SPEECH DISORDER [None]
  - UNRESPONSIVE TO STIMULI [None]
